APPROVED DRUG PRODUCT: MONTELUKAST SODIUM
Active Ingredient: MONTELUKAST SODIUM
Strength: EQ 5MG BASE
Dosage Form/Route: TABLET, CHEWABLE;ORAL
Application: A091414 | Product #002
Applicant: AIPING PHARMACEUTICAL INC
Approved: Aug 3, 2012 | RLD: No | RS: No | Type: DISCN